FAERS Safety Report 4489906-5 (Version None)
Quarter: 2004Q4

REPORT INFORMATION
  Report Type: 
  Country: None (occurrence: None)
  Receive Date: 20041026
  Receipt Date: 20041013
  Transmission Date: 20050328
  Serious: Yes (Hospitalization)
  Sender: FDA-Public Use
  Company Number: 2004CG02074

PATIENT
  Age: 53 Year
  Sex: Male
  Weight: 75 kg

DRUGS (5)
  1. TENORMIN [Suspect]
     Dosage: 50 MG BID PO
     Route: 048
     Dates: end: 20040901
  2. IKOREL [Concomitant]
  3. AMLOR [Concomitant]
  4. ZOCOR [Concomitant]
  5. PLAVIX [Concomitant]

REACTIONS (3)
  - ANAESTHETIC COMPLICATION CARDIAC [None]
  - BRADYCARDIA [None]
  - ELECTROCARDIOGRAM QRS COMPLEX PROLONGED [None]
